FAERS Safety Report 4927249-3 (Version None)
Quarter: 2006Q1

REPORT INFORMATION
  Report Type: 
  Country: None (occurrence: None)
  Receive Date: 20060228
  Receipt Date: 20050311
  Transmission Date: 20060701
  Serious: No
  Sender: FDA-Public Use
  Company Number: US-GLAXOSMITHKLINE-A0549446A

PATIENT
  Age: 61 Year
  Sex: Male

DRUGS (4)
  1. IMITREX [Suspect]
     Indication: MIGRAINE
     Dosage: 6MG AS REQUIRED
     Route: 058
     Dates: start: 20040101
  2. ZOMIG [Concomitant]
  3. PROPRANOLOL [Concomitant]
  4. SIMVASTATIN [Concomitant]

REACTIONS (3)
  - DIZZINESS [None]
  - FEELING HOT [None]
  - SENSORY DISTURBANCE [None]
